FAERS Safety Report 4784013-6 (Version None)
Quarter: 2005Q3

REPORT INFORMATION
  Report Type: 
  Country: None (occurrence: None)
  Receive Date: 20050927
  Receipt Date: 20050628
  Transmission Date: 20060218
  Serious: No
  Sender: FDA-Public Use
  Company Number: SP00440

PATIENT
  Age: 79 Year
  Sex: Female

DRUGS (10)
  1. XIFAXAN [Suspect]
     Indication: GASTROINTESTINAL DISORDER
     Dosage: 200MG/TID,ORAL
     Route: 048
     Dates: start: 20050511
  2. PREDNISONE [Concomitant]
  3. IMURAN [Concomitant]
  4. LASIX [Concomitant]
  5. POTASSIUM TABLETS [Concomitant]
  6. ASPIRIN [Concomitant]
  7. CITRACAL (TABLETS) [Concomitant]
  8. LOPRESSOR [Concomitant]
  9. PLAVIX [Concomitant]
  10. CENTRUM SILVER MULTIVITAMINS [Concomitant]

REACTIONS (4)
  - ASTHENIA [None]
  - FEELING ABNORMAL [None]
  - LISTLESS [None]
  - SLUGGISHNESS [None]
